FAERS Safety Report 9562305 (Version 2)
Quarter: 2013Q3

REPORT INFORMATION
  Report Type: Spontaneous
  Country: MX (occurrence: MX)
  Receive Date: 20130927
  Receipt Date: 20130927
  Transmission Date: 20140515
  Serious: Yes (Hospitalization, Other)
  Sender: FDA-Public Use
  Company Number: MX-ABBVIE-13P-107-1149818-00

PATIENT
  Age: 35 Year
  Sex: Female
  Weight: 60 kg

DRUGS (1)
  1. HUMIRA [Suspect]
     Indication: PSORIATIC ARTHROPATHY
     Route: 058
     Dates: start: 20100921, end: 20130703

REACTIONS (5)
  - Hyperthermia [Unknown]
  - Asthenia [Unknown]
  - Decreased appetite [Unknown]
  - Lymphadenopathy [Unknown]
  - Lymph node tuberculosis [Unknown]
